FAERS Safety Report 23999195 (Version 1)
Quarter: 2024Q2

REPORT INFORMATION
  Report Type: Spontaneous
  Country: US (occurrence: US)
  Receive Date: 20240621
  Receipt Date: 20240621
  Transmission Date: 20240716
  Serious: No
  Sender: FDA-Public Use
  Company Number: US-ABBVIE-5802739

PATIENT
  Age: 77 Year
  Sex: Female

DRUGS (6)
  1. SYNTHROID [Suspect]
     Active Substance: LEVOTHYROXINE SODIUM
     Indication: Product used for unknown indication
     Route: 048
  2. SACCHAROMYCES CEREVISIAE [Suspect]
     Active Substance: SACCHAROMYCES CEREVISIAE
     Indication: Product used for unknown indication
     Route: 065
  3. EZETIMIBE [Suspect]
     Active Substance: EZETIMIBE
     Indication: Blood cholesterol abnormal
     Route: 065
     Dates: end: 202402
  4. TYMLOS [Suspect]
     Active Substance: ABALOPARATIDE
     Indication: Osteoporosis
     Dosage: FORM STRENGTH: 80 MICROGRAM
     Route: 058
     Dates: start: 202304, end: 202307
  5. TYMLOS [Suspect]
     Active Substance: ABALOPARATIDE
     Indication: Osteoporosis
     Dosage: LAST ADMIN DATE: 2024?FORM STRENGTH: 80 MICROGRAM
     Route: 058
     Dates: start: 202402
  6. TYMLOS [Suspect]
     Active Substance: ABALOPARATIDE
     Indication: Osteoporosis
     Dosage: FIRST ADMIN DATE: 2024?FORM STRENGTH: 80 MICROGRAM
     Route: 058

REACTIONS (4)
  - Angioedema [Recovering/Resolving]
  - Pruritus [Recovered/Resolved]
  - Pollakiuria [Not Recovered/Not Resolved]
  - Hypotension [Recovered/Resolved]

NARRATIVE: CASE EVENT DATE: 20240201
